FAERS Safety Report 8104329-5 (Version None)
Quarter: 2012Q1

REPORT INFORMATION
  Report Type: 
  Country: None (occurrence: None)
  Receive Date: 20120130
  Receipt Date: 20120120
  Transmission Date: 20120608
  Serious: Yes (Hospitalization)
  Sender: FDA-Public Use
  Company Number: US-BAYER-2011-048750

PATIENT
  Age: 19 Year
  Sex: Female
  Weight: 63.492 kg

DRUGS (6)
  1. YAZ [Suspect]
     Indication: PREMENSTRUAL SYNDROME
  2. NAPROSYN [Concomitant]
     Indication: NON-CARDIAC CHEST PAIN
  3. YAZ [Suspect]
     Indication: CONTRACEPTION
     Dosage: UNK UNK, QD
     Dates: start: 20080101, end: 20090101
  4. YAZ [Suspect]
     Indication: ACNE
  5. FRAGMIN [Concomitant]
  6. VICODIN [Concomitant]
     Indication: NON-CARDIAC CHEST PAIN

REACTIONS (5)
  - PAIN [None]
  - NON-CARDIAC CHEST PAIN [None]
  - PULMONARY THROMBOSIS [None]
  - MIGRAINE [None]
  - INJURY [None]
